FAERS Safety Report 8167720-7 (Version None)
Quarter: 2012Q1

REPORT INFORMATION
  Report Type: 
  Country: None (occurrence: None)
  Receive Date: 20120227
  Receipt Date: 20120223
  Transmission Date: 20120608
  Serious: Yes (Life-Threatening, Hospitalization, Other)
  Sender: FDA-Public Use
  Company Number: FR-BAYER-200917578GPV

PATIENT
  Age: 60 Year
  Sex: Male
  Weight: 75 kg

DRUGS (3)
  1. GADAVIST [Suspect]
     Indication: ULTRASOUND PROSTATE
     Dosage: 7.7 ML, ONCE
     Route: 042
     Dates: start: 20090330, end: 20090330
  2. GADAVIST [Suspect]
     Indication: NUCLEAR MAGNETIC RESONANCE IMAGING
  3. CAPTOPRIL AND HYDROCHLOROTHIAZIDE [Concomitant]
     Indication: HYPERTENSION
     Route: 065

REACTIONS (16)
  - ERYTHEMA [None]
  - HYPERHIDROSIS [None]
  - LIVEDO RETICULARIS [None]
  - PULMONARY OEDEMA [None]
  - HYPOXIA [None]
  - CHEST DISCOMFORT [None]
  - CARDIOGENIC SHOCK [None]
  - HYPOPERFUSION [None]
  - ACUTE RESPIRATORY DISTRESS SYNDROME [None]
  - DIARRHOEA [None]
  - ABDOMINAL PAIN [None]
  - DYSPNOEA [None]
  - ANAPHYLACTIC SHOCK [None]
  - PRESYNCOPE [None]
  - HYPOTENSION [None]
  - CARDIAC FAILURE [None]
